FAERS Safety Report 5299777-5 (Version None)
Quarter: 2007Q2

REPORT INFORMATION
  Report Type: 
  Country: None (occurrence: None)
  Receive Date: 20070417
  Receipt Date: 20070406
  Transmission Date: 20071010
  Serious: Yes (Other)
  Sender: FDA-Public Use
  Company Number: JP-PFIZER INC-2007028410

PATIENT
  Age: 76 Year
  Sex: Male

DRUGS (7)
  1. SULPERAZON [Suspect]
     Indication: PNEUMONIA
     Route: 042
  2. VASOLAN [Concomitant]
  3. DIGOSIN [Concomitant]
  4. MAGNESIUM OXIDE [Concomitant]
     Route: 048
  5. VANCOMYCIN [Concomitant]
  6. FINIBAX [Concomitant]
     Route: 042
  7. FLOMOX [Concomitant]
     Route: 048

REACTIONS (1)
  - PURPURA [None]
